FAERS Safety Report 15417703 (Version 2)
Quarter: 2018Q4

REPORT INFORMATION
  Report Type: Spontaneous
  Country: ZA (occurrence: ZA)
  Receive Date: 20180924
  Receipt Date: 20181126
  Transmission Date: 20190204
  Serious: Yes (Disabling, Other)
  Sender: FDA-Public Use
  Company Number: ZA-SA-2018SA262617

PATIENT
  Age: 80 Year
  Sex: Female
  Weight: 62.5 kg

DRUGS (3)
  1. CEREZYME [Suspect]
     Active Substance: IMIGLUCERASE
     Dosage: 1200 U
     Route: 041
     Dates: start: 201801
  2. CEREZYME [Suspect]
     Active Substance: IMIGLUCERASE
     Dosage: 800 UNK
     Route: 041
     Dates: start: 201809
  3. CEREZYME [Suspect]
     Active Substance: IMIGLUCERASE
     Indication: GAUCHER^S DISEASE
     Dosage: UNK, UNK
     Route: 041

REACTIONS (3)
  - Lymphoma [Not Recovered/Not Resolved]
  - Neuropathy peripheral [Not Recovered/Not Resolved]
  - Sensory loss [Not Recovered/Not Resolved]

NARRATIVE: CASE EVENT DATE: 201801
